FAERS Safety Report 4932156-6 (Version None)
Quarter: 2006Q1

REPORT INFORMATION
  Report Type: 
  Country: None (occurrence: None)
  Receive Date: 20060227
  Receipt Date: 20060217
  Transmission Date: 20060701
  Serious: Yes (Hospitalization, Other)
  Sender: FDA-Public Use
  Company Number: HQWYE910921FEB06

PATIENT
  Age: 74 Year
  Sex: Male

DRUGS (5)
  1. AMIODARONE HCL [Suspect]
     Dosage: 1000 MG 1X PER 1 WK
     Route: 048
  2. PREVISCAN (FLUINDIONE, ) [Suspect]
     Dosage: SEE IMAGE
     Route: 048
     Dates: end: 20051101
  3. ALLOPURINOL [Suspect]
     Dosage: 100 MG 1X PER 1 DAY
     Route: 048
  4. ENALAPRIL MALEATE [Concomitant]
  5. GLUCOPHAGE [Concomitant]

REACTIONS (5)
  - BLOOD FIBRINOGEN INCREASED [None]
  - DRUG INTERACTION [None]
  - INTERNATIONAL NORMALISED RATIO INCREASED [None]
  - MUSCULOSKELETAL DISORDER [None]
  - RED BLOOD CELL SEDIMENTATION RATE INCREASED [None]
